FAERS Safety Report 10541542 (Version 1)
Quarter: 2014Q4

REPORT INFORMATION
  Report Type: Spontaneous
  Country: GB (occurrence: GB)
  Receive Date: 20141024
  Receipt Date: 20141024
  Transmission Date: 20150529
  Serious: Yes (Disabling)
  Sender: FDA-Public Use
  Company Number: GB-TEVA-515776ISR

PATIENT
  Age: 62 Year
  Sex: Male
  Weight: 53 kg

DRUGS (8)
  1. GLYCERYL TRINITRATE [Concomitant]
     Active Substance: NITROGLYCERIN
     Dates: start: 20140903
  2. PREDNISOLONE. [Concomitant]
     Active Substance: PREDNISOLONE
     Dates: start: 20140930
  3. TIOTROPIUM [Concomitant]
     Active Substance: TIOTROPIUM
     Dates: start: 20140516
  4. ASPIRIN. [Concomitant]
     Active Substance: ASPIRIN
     Dates: start: 20140516
  5. SYMBICORT [Concomitant]
     Active Substance: BUDESONIDE\FORMOTEROL FUMARATE DIHYDRATE
     Dates: start: 20140516
  6. VENTOLIN [Concomitant]
     Active Substance: ALBUTEROL SULFATE
     Dates: start: 20140516
  7. OMEPRAZOLE. [Concomitant]
     Active Substance: OMEPRAZOLE
     Dates: start: 20140516
  8. DOXYCYCLINE. [Suspect]
     Active Substance: DOXYCYCLINE
     Dates: start: 20140930

REACTIONS (3)
  - Vomiting [Recovered/Resolved]
  - Nausea [Unknown]
  - Lethargy [Unknown]

NARRATIVE: CASE EVENT DATE: 20141003
